FAERS Safety Report 5122591-8 (Version None)
Quarter: 2006Q4

REPORT INFORMATION
  Report Type: 
  Country: None (occurrence: None)
  Receive Date: 20061004
  Receipt Date: 20061004
  Transmission Date: 20070319
  Serious: Yes (Life-Threatening, Hospitalization)
  Sender: FDA-Public Use
  Company Number: None

PATIENT
  Age: 23 Month
  Sex: Male
  Weight: 10.4327 kg

DRUGS (1)
  1. ZICAM [Suspect]
     Indication: RHINORRHOEA
     Dates: start: 20050104, end: 20050213

REACTIONS (1)
  - APLASTIC ANAEMIA [None]
